FAERS Safety Report 20361704 (Version 3)
Quarter: 2022Q1

REPORT INFORMATION
  Report Type: Report from Study
  Country: GB (occurrence: GB)
  Receive Date: 20220121
  Receipt Date: 20220311
  Transmission Date: 20220423
  Serious: Yes (Congenital Anomaly, Other)
  Sender: FDA-Public Use
  Company Number: GB-EMA-DD-20190508-sahu_k-155638

PATIENT
  Age: 1 Day
  Sex: Male
  Weight: 3.1 kg

DRUGS (30)
  1. LAMIVUDINE [Suspect]
     Active Substance: LAMIVUDINE
     Indication: HIV infection
     Dosage: 300 MILLIGRAM DAILY; UNK , ADDITIONAL INFO : DOSE 1. START DATE: MONTH UNKNOWN
     Route: 064
     Dates: start: 20090101, end: 20100610
  2. LAMIVUDINE [Suspect]
     Active Substance: LAMIVUDINE
     Indication: Antiretroviral therapy
     Dosage: MOTHER DOSE: UNK, THERAPY END DATE: ASKU
     Route: 064
     Dates: start: 20100610, end: 20100610
  3. LAMIVUDINE [Suspect]
     Active Substance: LAMIVUDINE
     Indication: Foetal exposure during pregnancy
  4. NEVIRAPINE [Suspect]
     Active Substance: NEVIRAPINE
     Indication: HIV infection
     Dosage: 400 MILLIGRAM DAILY; MOTHER DOSE: 400 MG, QD , ADDITIONAL INFO : DOSE 1. START DATE: MONTH UNKNOWN
     Route: 064
     Dates: start: 20090101, end: 20100610
  5. NEVIRAPINE [Suspect]
     Active Substance: NEVIRAPINE
     Indication: Foetal exposure during pregnancy
     Dosage: MOTHER DOSE: UNK
     Route: 064
     Dates: start: 20100610
  6. NEVIRAPINE [Suspect]
     Active Substance: NEVIRAPINE
     Indication: Antiretroviral therapy
     Route: 065
  7. TENOFOVIR DISOPROXIL FUMARATE [Suspect]
     Active Substance: TENOFOVIR DISOPROXIL FUMARATE
     Indication: Foetal exposure during pregnancy
     Dosage: 300 MILLIGRAM DAILY; MOTHER DOSE: 300 MG, QD
     Route: 064
     Dates: start: 20100610
  8. TENOFOVIR DISOPROXIL FUMARATE [Suspect]
     Active Substance: TENOFOVIR DISOPROXIL FUMARATE
     Dosage: MOTHER DOSE: UNK , THERAPY START DATE : ASKU
     Route: 064
     Dates: end: 20100610
  9. RALTEGRAVIR [Suspect]
     Active Substance: RALTEGRAVIR
     Indication: Foetal exposure during pregnancy
     Dosage: 800 MILLIGRAM DAILY; 800 MILLIGRAM, QD , ADDITIONAL INFO : DOSE 1. STOP DATE: CONTINUING
     Route: 064
     Dates: start: 20100610
  10. RALTEGRAVIR [Suspect]
     Active Substance: RALTEGRAVIR
     Indication: Antiretroviral therapy
     Route: 065
  11. ZIDOVUDINE [Suspect]
     Active Substance: ZIDOVUDINE
     Indication: HIV infection
     Dosage: UNK , ADDITIONAL INFO : DOSE 1. START DATE: MONTH UNKNOWN
     Route: 064
     Dates: start: 20090101, end: 20100610
  12. ZIDOVUDINE [Suspect]
     Active Substance: ZIDOVUDINE
     Indication: Foetal exposure during pregnancy
     Dosage: 800 MILLIGRAM DAILY; MOTHER DOSE 800 MG, QD, THERAPY END DATE: ASKU
     Route: 064
     Dates: start: 20100610
  13. ZIDOVUDINE [Suspect]
     Active Substance: ZIDOVUDINE
     Indication: Antiretroviral therapy
     Dosage: 600 MILLIGRAM DAILY; MOTHER DOSE: 600 MG, QD
     Route: 064
     Dates: start: 20090101, end: 20100610
  14. ZIDOVUDINE [Suspect]
     Active Substance: ZIDOVUDINE
     Dosage: UNK
     Route: 064
     Dates: end: 20100610
  15. VIREAD [Suspect]
     Active Substance: TENOFOVIR DISOPROXIL FUMARATE
     Indication: HIV infection
     Dosage: UNK , ADDITIONAL INFO : DOSE1. STOP DATE: CONTINUING
     Route: 064
     Dates: start: 20100610, end: 20100629
  16. VIREAD [Suspect]
     Active Substance: TENOFOVIR DISOPROXIL FUMARATE
     Indication: Antiretroviral therapy
     Dosage: MOTHER DOSE: UNK, THERAPY END DATE: ASKU
     Route: 064
     Dates: start: 20100610
  17. VIREAD [Suspect]
     Active Substance: TENOFOVIR DISOPROXIL FUMARATE
     Indication: Foetal exposure during pregnancy
  18. KALETRA [Suspect]
     Active Substance: LOPINAVIR\RITONAVIR
     Indication: Foetal exposure during pregnancy
     Dosage: MOTHER DOSE: UNK, THERAPY END DATE: ASKU , ADDITIONAL INFO : DOSE 1. STOP DATE: CONTINUING
     Route: 064
     Dates: start: 20100710
  19. KALETRA [Suspect]
     Active Substance: LOPINAVIR\RITONAVIR
     Indication: HIV infection
     Dosage: UNK, THERAPY END DATE: ASKU
     Route: 064
     Dates: start: 20100610
  20. KALETRA [Suspect]
     Active Substance: LOPINAVIR\RITONAVIR
     Indication: Antiretroviral therapy
  21. LOPINAVIR\RITONAVIR [Suspect]
     Active Substance: LOPINAVIR\RITONAVIR
     Indication: Antiretroviral therapy
     Dosage: MOTHER DOSE: UNK, THERAPY END DATE: ASKU
     Route: 064
     Dates: start: 20100610
  22. LOPINAVIR\RITONAVIR [Suspect]
     Active Substance: LOPINAVIR\RITONAVIR
     Indication: HIV infection
     Dosage: UNK , THERAPY START DATE AND END DATE : ASKU
     Route: 064
  23. LOPINAVIR\RITONAVIR [Suspect]
     Active Substance: LOPINAVIR\RITONAVIR
     Indication: Foetal exposure during pregnancy
     Dosage: UNK , THERAPY START DATE AND END DATE : ASKU
     Route: 064
  24. LOPINAVIR\RITONAVIR [Suspect]
     Active Substance: LOPINAVIR\RITONAVIR
     Dosage: UNK , THERAPY END DATE : ASKU
     Route: 064
     Dates: start: 20100610
  25. ISENTRESS [Suspect]
     Active Substance: RALTEGRAVIR POTASSIUM
     Indication: Antiretroviral therapy
     Dosage: 3200 MILLIGRAM DAILY; THERAPY END DATE: ASKU, MATERNAL DOSE-800 MG, QID , ADDITIONAL INFO :  DOSE# 1
     Route: 064
     Dates: start: 20100610
  26. ISENTRESS [Suspect]
     Active Substance: RALTEGRAVIR POTASSIUM
     Indication: HIV infection
     Route: 065
  27. ISENTRESS [Suspect]
     Active Substance: RALTEGRAVIR POTASSIUM
     Indication: Foetal exposure during pregnancy
  28. VIRAMUNE [Suspect]
     Active Substance: NEVIRAPINE
     Indication: Antiretroviral therapy
     Dosage: UNK
     Route: 064
     Dates: start: 20090101, end: 20100610
  29. VIRAMUNE [Suspect]
     Active Substance: NEVIRAPINE
     Indication: HIV infection
     Dosage: THERAPY START DATE : ASKU , UNK
     Route: 064
     Dates: end: 20100610
  30. VIRAMUNE [Suspect]
     Active Substance: NEVIRAPINE
     Route: 064
     Dates: start: 20100610

REACTIONS (3)
  - Volvulus [Not Recovered/Not Resolved]
  - Foetal exposure during pregnancy [Recovered/Resolved]
  - Foetal exposure during pregnancy [Not Recovered/Not Resolved]

NARRATIVE: CASE EVENT DATE: 20090922
